FAERS Safety Report 12987235 (Version 1)
Quarter: 2016Q4

REPORT INFORMATION
  Report Type: Spontaneous
  Country: DE (occurrence: DE)
  Receive Date: 20161130
  Receipt Date: 20161130
  Transmission Date: 20170207
  Serious: Yes (Hospitalization)
  Sender: FDA-Public Use
  Company Number: DE-JNJFOC-20161125630

PATIENT
  Sex: Female

DRUGS (2)
  1. STELARA [Suspect]
     Active Substance: USTEKINUMAB
     Indication: PSORIATIC ARTHROPATHY
     Route: 058
     Dates: start: 20160930
  2. STELARA [Suspect]
     Active Substance: USTEKINUMAB
     Indication: PSORIATIC ARTHROPATHY
     Dosage: DOSING INTERVAL OF 4 WEEKS
     Route: 058
     Dates: start: 201608

REACTIONS (5)
  - Decreased immune responsiveness [Unknown]
  - Osteitis [Unknown]
  - Herpes simplex [Unknown]
  - Stomatitis [Unknown]
  - Jaw operation [Unknown]

NARRATIVE: CASE EVENT DATE: 2016
